FAERS Safety Report 5772664-1 (Version None)
Quarter: 2008Q2

REPORT INFORMATION
  Report Type: 
  Country: None (occurrence: None)
  Receive Date: 20080613
  Receipt Date: 20080603
  Transmission Date: 20081010
  Serious: Yes (Hospitalization, Disabling)
  Sender: FDA-Public Use
  Company Number: GB-BOEHRINGER INGELHEIM GMBH, GERMANY-2008-UK-01154UK

PATIENT
  Sex: Male

DRUGS (3)
  1. VIRAMUNE [Suspect]
     Indication: HIV INFECTION
     Dosage: 200 MG TWICE DAILY
     Route: 048
     Dates: start: 20061117
  2. TRUVADA [Concomitant]
     Indication: HIV INFECTION
     Dosage: ONE, ONCE DAILY
     Route: 048
     Dates: start: 20061012
  3. ACYCLOVIR [Concomitant]
     Indication: HERPES VIRUS INFECTION
     Dosage: 400 MG TWICE DAILY
     Route: 048
     Dates: start: 20080226

REACTIONS (1)
  - IMMUNE RECONSTITUTION SYNDROME [None]
